FAERS Safety Report 9741645 (Version 2)
Quarter: 2013Q4

REPORT INFORMATION
  Report Type: Spontaneous
  Country: US (occurrence: US)
  Receive Date: 20131210
  Receipt Date: 20131231
  Transmission Date: 20140711
  Serious: No
  Sender: FDA-Public Use
  Company Number: US-BIOGENIDEC-2013BI115602

PATIENT
  Age: 55 Year
  Sex: Male
  Weight: 74 kg

DRUGS (6)
  1. TYSABRI [Suspect]
     Indication: MULTIPLE SCLEROSIS
     Route: 042
     Dates: start: 20130812, end: 20131020
  2. GABAPENTIN [Concomitant]
     Route: 048
  3. HYDROCODONE-ACETAMINOPHEN [Concomitant]
  4. LISINOPRIL [Concomitant]
     Route: 048
  5. ASPIRIN [Concomitant]
  6. PRILOSEC [Concomitant]
     Indication: PROPHYLAXIS AGAINST GASTROINTESTINAL ULCER

REACTIONS (7)
  - Adverse drug reaction [Recovered/Resolved]
  - Diarrhoea [Recovered/Resolved]
  - Insomnia [Unknown]
  - Gastroenteritis [Recovered/Resolved]
  - Ophthalmic herpes zoster [Not Recovered/Not Resolved]
  - Eye disorder [Not Recovered/Not Resolved]
  - Optic neuritis [Not Recovered/Not Resolved]
